FAERS Safety Report 9136247 (Version 1)
Quarter: 2013Q1

REPORT INFORMATION
  Report Type: Spontaneous
  Country: GB (occurrence: GB)
  Receive Date: 20130304
  Receipt Date: 20130304
  Transmission Date: 20140127
  Serious: Yes (Hospitalization)
  Sender: FDA-Public Use
  Company Number: GB-GLAXOSMITHKLINE-B0870044A

PATIENT
  Age: 30 Year
  Sex: Male

DRUGS (4)
  1. SEROXAT [Suspect]
     Indication: ASTHENIA
     Route: 048
     Dates: start: 19970527, end: 19970604
  2. DOTHIEPIN [Concomitant]
  3. TEMAZEPAM [Concomitant]
  4. LORAZEPAM [Concomitant]

REACTIONS (9)
  - Suicide attempt [Unknown]
  - Aggression [Unknown]
  - Paranoia [Unknown]
  - Panic reaction [Unknown]
  - Overdose [Unknown]
  - Aggression [Unknown]
  - Imprisonment [Unknown]
  - Mental disorder [Unknown]
  - Fear [Unknown]
